FAERS Safety Report 5318807-5 (Version None)
Quarter: 2007Q2

REPORT INFORMATION
  Report Type: 
  Country: None (occurrence: None)
  Receive Date: 20070504
  Receipt Date: 20070504
  Transmission Date: 20071010
  Serious: Yes (Hospitalization)
  Sender: FDA-Public Use
  Company Number: None

PATIENT
  Age: 82 Year
  Sex: Male

DRUGS (11)
  1. ACETAMINOPHEN AND CODEINE PHOSPHATE [Suspect]
     Indication: PAIN
     Dosage: 1-2 PO Q4H PRN
     Route: 048
     Dates: start: 20070301, end: 20070307
  2. AMOXICILLIN [Concomitant]
  3. AMPICILLIN NA [Concomitant]
  4. PLAVIX [Concomitant]
  5. FLUNISOLIDE [Concomitant]
  6. FUROSEMIDE [Concomitant]
  7. KETOCONAZOLE [Concomitant]
  8. LACTIC ACID 12% LOTION [Concomitant]
  9. LACTULOSE [Concomitant]
  10. LEVALBUTEROL HCL [Concomitant]
  11. MICONAZOLE [Concomitant]

REACTIONS (2)
  - CONSTIPATION [None]
  - FAECALOMA [None]
